FAERS Safety Report 14573883 (Version 1)
Quarter: 2018Q1

REPORT INFORMATION
  Report Type: Spontaneous
  Country: US (occurrence: US)
  Receive Date: 20180226
  Receipt Date: 20180226
  Transmission Date: 20180509
  Serious: No
  Sender: FDA-Public Use
  Company Number: US-MISSION PHARMACAL COMPANY-2042586

PATIENT
  Age: 32 Year
  Sex: Female

DRUGS (1)
  1. THIOLA [Suspect]
     Active Substance: TIOPRONIN
     Indication: CYSTINURIA
     Route: 065
     Dates: start: 20141115

REACTIONS (7)
  - Rash [Not Recovered/Not Resolved]
  - Erythema [Unknown]
  - Gastrointestinal disorder [Unknown]
  - Fatigue [Unknown]
  - Drug ineffective [Unknown]
  - Hypersensitivity [Unknown]
  - Drug dose omission [Not Recovered/Not Resolved]
